FAERS Safety Report 5715125-8 (Version None)
Quarter: 2008Q2

REPORT INFORMATION
  Report Type: 
  Country: None (occurrence: None)
  Receive Date: 20080423
  Receipt Date: 20080328
  Transmission Date: 20081010
  Serious: No
  Sender: FDA-Public Use
  Company Number: US-BOEHRINGER INGELHEIM GMBH, GERMANY-2008-BP-05031BP

PATIENT
  Sex: Female

DRUGS (3)
  1. SPIRIVA [Suspect]
     Indication: BRONCHITIS CHRONIC
     Dates: start: 20010401
  2. ALBUTEROL SULFATE [Concomitant]
     Indication: DYSPNOEA
  3. FORADIL [Concomitant]
     Indication: DYSPNOEA

REACTIONS (1)
  - HYPERSENSITIVITY [None]
